FAERS Safety Report 10977512 (Version 1)
Quarter: 2015Q1

REPORT INFORMATION
  Report Type: Spontaneous
  Country: US (occurrence: None)
  Receive Date: 20150330
  Receipt Date: 20150330
  Transmission Date: 20150721
  Serious: No
  Sender: FDA-Public Use
  Company Number: 2015-00035

PATIENT
  Age: 67 Year
  Sex: Female

DRUGS (2)
  1. ZICAM COLD REMEDY RAPIDMELTS [Suspect]
     Active Substance: ZINC ACETATE ANHYDROUS\ZINC GLUCONATE
     Route: 048
     Dates: start: 20150319, end: 20150321
  2. ZICAM COLD REMEDY RAPIDMELTS [Suspect]
     Active Substance: ZINC ACETATE ANHYDROUS\ZINC GLUCONATE
     Indication: NASOPHARYNGITIS
     Route: 048
     Dates: start: 20150319, end: 20150321

REACTIONS (2)
  - Ageusia [None]
  - Anosmia [None]

NARRATIVE: CASE EVENT DATE: 20150321
